FAERS Safety Report 5664136-X (Version None)
Quarter: 2008Q1

REPORT INFORMATION
  Report Type: 
  Country: None (occurrence: None)
  Receive Date: 20080312
  Receipt Date: 20080225
  Transmission Date: 20080703
  Serious: Yes (Other)
  Sender: FDA-Public Use
  Company Number: MC200800114

PATIENT
  Age: 59 Year
  Sex: Male

DRUGS (9)
  1. ANGIOMAX [Suspect]
     Indication: ANTICOAGULANT THERAPY
     Dosage: 0.63 MG/KG, SINGLE, IV BOLUS
     Route: 040
  2. ANGIOMAX [Suspect]
     Indication: CORONARY ARTERY BYPASS
     Dosage: 0.63 MG/KG, SINGLE, IV BOLUS
     Route: 040
  3. LEPIRUDIN(LEPIRUDIN) [Suspect]
     Indication: ANTICOAGULANT THERAPY
  4. FACTOR VIIA(FACTOR VIIA) [Suspect]
     Indication: COAGULOPATHY
     Dosage: 90 UG/KG (7.2 MG OVER 90 MINUTES), INTRAVENOUS
     Route: 042
  5. FACTOR VIIA(FACTOR VIIA) [Suspect]
     Indication: HAEMORRHAGE
     Dosage: 90 UG/KG (7.2 MG OVER 90 MINUTES), INTRAVENOUS
     Route: 042
  6. APROTININ [Concomitant]
  7. HEPARIN [Concomitant]
  8. EPINEPHRINE [Concomitant]
  9. DOPAMINE HCL [Concomitant]

REACTIONS (17)
  - ACTIVATED PARTIAL THROMBOPLASTIN TIME PROLONGED [None]
  - AKINESIA [None]
  - ANOXIC ENCEPHALOPATHY [None]
  - ATRIAL THROMBOSIS [None]
  - CARDIAC TAMPONADE [None]
  - COAGULOPATHY [None]
  - CRANIAL NERVE DISORDER [None]
  - DILATATION VENTRICULAR [None]
  - GRAND MAL CONVULSION [None]
  - HAEMOGLOBIN DECREASED [None]
  - INTERNATIONAL NORMALISED RATIO INCREASED [None]
  - LEFT ATRIAL DILATATION [None]
  - POST PROCEDURAL HAEMORRHAGE [None]
  - RENAL IMPAIRMENT [None]
  - RESPIRATORY DISORDER [None]
  - SUPRAVENTRICULAR TACHYCARDIA [None]
  - UPPER GASTROINTESTINAL HAEMORRHAGE [None]
